FAERS Safety Report 7197240-8 (Version None)
Quarter: 2010Q4

REPORT INFORMATION
  Report Type: 
  Country: None (occurrence: None)
  Receive Date: 20101224
  Receipt Date: 20101214
  Transmission Date: 20110411
  Serious: Yes (Hospitalization)
  Sender: FDA-Public Use
  Company Number: PHHY2010US85855

PATIENT
  Age: 88 Year
  Sex: Female

DRUGS (1)
  1. TASIGNA [Suspect]
     Dosage: 300 UNK, BID

REACTIONS (1)
  - CEREBROVASCULAR ACCIDENT [None]
